FAERS Safety Report 11528629 (Version 1)
Quarter: 2015Q3

REPORT INFORMATION
  Report Type: Spontaneous
  Country: FR (occurrence: None)
  Receive Date: 20150917
  Receipt Date: 20150917
  Transmission Date: 20151125
  Serious: Yes (Hospitalization, Other)
  Sender: FDA-Public Use
  Company Number: FR-ZYDUS-008994

PATIENT
  Age: 85 Year
  Sex: Female

DRUGS (1)
  1. GABAPENTINE (GABAPENTINE) [Suspect]
     Active Substance: GABAPENTIN
     Indication: PARTIAL SEIZURES
     Dosage: 1.0DAYS

REACTIONS (4)
  - White matter lesion [None]
  - Toxic encephalopathy [None]
  - Hyperammonaemia [None]
  - Toxicity to various agents [None]
